FAERS Safety Report 4282701-1 (Version None)
Quarter: 2004Q1

REPORT INFORMATION
  Report Type: 
  Country: None (occurrence: None)
  Receive Date: 20040130
  Receipt Date: 20030317
  Transmission Date: 20041129
  Serious: No
  Sender: FDA-Public Use
  Company Number: US-BRISTOL-MYERS SQUIBB COMPANY-12213815

PATIENT
  Sex: Female

DRUGS (1)
  1. SERZONE [Suspect]
     Route: 048

REACTIONS (5)
  - AMNESIA [None]
  - CHROMATURIA [None]
  - DRY MOUTH [None]
  - FATIGUE [None]
  - PAIN [None]
